FAERS Safety Report 8232925-3 (Version None)
Quarter: 2012Q1

REPORT INFORMATION
  Report Type: 
  Country: None (occurrence: None)
  Receive Date: 20120325
  Receipt Date: 20120309
  Transmission Date: 20120608
  Serious: Yes (Death, Hospitalization)
  Sender: FDA-Public Use
  Company Number: CA-ROCHE-1032310

PATIENT
  Sex: Female
  Weight: 73.094 kg

DRUGS (18)
  1. DECADRON [Concomitant]
  2. HERCEPTIN [Suspect]
     Indication: BREAST CANCER METASTATIC
     Route: 042
     Dates: start: 20080101
  3. SYNTHROID [Concomitant]
     Dates: start: 20120201
  4. DIAMICRON [Concomitant]
     Dates: start: 20120201
  5. DOMPERIDONE [Concomitant]
  6. HERCEPTIN [Suspect]
     Dosage: LOADING DOSE
     Route: 042
     Dates: start: 20110916
  7. PROCHLORPERAZINE [Concomitant]
  8. DOCETAXEL [Suspect]
     Indication: PRODUCT USED FOR UNKNOWN INDICATION
     Route: 065
     Dates: start: 20110701
  9. METFORMIN HCL [Concomitant]
     Dates: start: 20120201
  10. LYRICA [Concomitant]
     Indication: NEURALGIA
     Dates: start: 20120201
  11. NYSTATIN [Concomitant]
     Indication: CANDIDIASIS
     Route: 048
     Dates: start: 20110918
  12. HERCEPTIN [Suspect]
     Route: 042
     Dates: start: 20111007
  13. HERCEPTIN [Suspect]
     Route: 042
     Dates: start: 20120106
  14. ZOFRAN [Concomitant]
  15. PREVACID [Concomitant]
     Dates: start: 20120201
  16. HYDROMORPHONE HCL [Concomitant]
     Dates: start: 20120201
  17. DOCETAXEL [Suspect]
     Route: 042
     Dates: start: 20110916, end: 20120106
  18. CRESTOR [Concomitant]
     Indication: HYPERLIPIDAEMIA
     Dates: start: 20120201

REACTIONS (8)
  - STAPHYLOCOCCAL BACTERAEMIA [None]
  - ASTHENIA [None]
  - FEBRILE NEUTROPENIA [None]
  - DEATH [None]
  - OEDEMA [None]
  - INFECTION [None]
  - DEHYDRATION [None]
  - EPISTAXIS [None]
